FAERS Safety Report 16149976 (Version 3)
Quarter: 2019Q2

REPORT INFORMATION
  Report Type: Spontaneous
  Country: IT (occurrence: IT)
  Receive Date: 20190402
  Receipt Date: 20190521
  Transmission Date: 20190711
  Serious: Yes (Hospitalization)
  Sender: FDA-Public Use
  Company Number: PHHY2019IT071861

PATIENT
  Age: 42 Year
  Sex: Male

DRUGS (5)
  1. ACETYLSALICYLIC ACID [Suspect]
     Active Substance: ASPIRIN
     Indication: SUICIDE ATTEMPT
     Dosage: 800 MG, (TOTAL)
     Route: 048
     Dates: start: 20190311, end: 20190311
  2. IBUPROFEN. [Suspect]
     Active Substance: IBUPROFEN
     Indication: SUICIDE ATTEMPT
     Dosage: 7200 MG, (TOTAL)
     Route: 048
     Dates: start: 20190311, end: 20190311
  3. PARACETAMOL [Suspect]
     Active Substance: ACETAMINOPHEN
     Indication: SUICIDE ATTEMPT
     Dosage: 16 G, (TOTAL)
     Route: 048
     Dates: start: 20190311, end: 20190311
  4. MIRTAZAPINE. [Suspect]
     Active Substance: MIRTAZAPINE
     Indication: SUICIDE ATTEMPT
     Dosage: 630 MG, (TOTAL)
     Route: 048
     Dates: start: 20190311, end: 20190311
  5. NAPROXEN SODIUM. [Suspect]
     Active Substance: NAPROXEN SODIUM
     Indication: SUICIDE ATTEMPT
     Dosage: 5280 MG, (TOTAL)
     Route: 048
     Dates: start: 20190311, end: 20190311

REACTIONS (4)
  - Suicide attempt [Unknown]
  - Sopor [Unknown]
  - Drug abuse [Unknown]
  - Depressed level of consciousness [Unknown]

NARRATIVE: CASE EVENT DATE: 20190311
